FAERS Safety Report 8327914-4 (Version None)
Quarter: 2012Q2

REPORT INFORMATION
  Report Type: 
  Country: None (occurrence: None)
  Receive Date: 20120502
  Receipt Date: 20120424
  Transmission Date: 20120825
  Serious: Yes (Hospitalization)
  Sender: FDA-Public Use
  Company Number: US-CELGENEUS-163-21880-11061117

PATIENT
  Sex: Female
  Weight: 67 kg

DRUGS (18)
  1. MORPHINE SULFATE [Concomitant]
     Indication: PAIN
     Dosage: 30 MILLIGRAM
     Route: 048
  2. ADVAIR DISKUS 100/50 [Concomitant]
     Dosage: 115MCG-21MCG
     Route: 055
  3. ASPIRIN [Concomitant]
     Dosage: 81 MILLIGRAM
     Route: 048
  4. VITAMIN E [Concomitant]
     Dosage: 400 UNITS
     Route: 048
  5. REVLIMID [Suspect]
     Route: 048
     Dates: start: 20110701, end: 20110819
  6. FERROUS SULFATE TAB [Concomitant]
     Route: 065
  7. VITAMIN B-12 [Concomitant]
     Dosage: 1000 MICROGRAM
     Route: 041
  8. CALCIUM + VITAMIN D [Concomitant]
     Route: 065
  9. MULTI-VITAMINS [Concomitant]
     Route: 065
  10. ATIVAN [Concomitant]
     Indication: ANXIETY
     Dosage: 1 MILLIGRAM
     Route: 048
  11. ROBITUSSIN DM [Concomitant]
     Dosage: 10MG-200MG/5ML
     Route: 048
  12. ZOCOR [Concomitant]
     Indication: BLOOD CHOLESTEROL INCREASED
     Dosage: 40 MILLIGRAM
     Route: 048
  13. DECADRON [Concomitant]
     Indication: MULTIPLE MYELOMA
     Dosage: 40 MILLIGRAM
     Route: 048
  14. MORPHINE [Concomitant]
     Indication: CHEMOTHERAPY
     Dosage: 30 MILLIGRAM
     Route: 048
  15. FOLIC ACID [Concomitant]
     Dosage: 1 MILLIGRAM
     Route: 048
  16. PRILOSEC [Concomitant]
     Dosage: 20 MILLIGRAM
     Route: 048
  17. REVLIMID [Suspect]
     Dosage: 15 MILLIGRAM
     Route: 048
     Dates: start: 20101230
  18. THYROID EXTRACT [Concomitant]
     Indication: HYPOTHYROIDISM
     Dosage: 120 MILLIGRAM
     Route: 048

REACTIONS (3)
  - ANXIETY [None]
  - METABOLIC ENCEPHALOPATHY [None]
  - DYSPNOEA [None]
